FAERS Safety Report 10248181 (Version 1)
Quarter: 2014Q2

REPORT INFORMATION
  Report Type: Spontaneous
  Country: AM (occurrence: AM)
  Receive Date: 20140620
  Receipt Date: 20140620
  Transmission Date: 20141212
  Serious: Yes (Other)
  Sender: FDA-Public Use
  Company Number: PHHY2014AM071695

PATIENT
  Sex: 0

DRUGS (1)
  1. METHYLPREDNISOLONE [Suspect]
     Indication: INFANTILE SPASMS
     Dosage: 32 MG
     Route: 048

REACTIONS (3)
  - Hyperkinesia [Recovered/Resolved]
  - Cushingoid [Unknown]
  - Drug ineffective [Unknown]
